FAERS Safety Report 9563129 (Version 1)
Quarter: 2013Q3

REPORT INFORMATION
  Report Type: Spontaneous
  Country: BR (occurrence: BR)
  Receive Date: 20130927
  Receipt Date: 20130927
  Transmission Date: 20140515
  Serious: Yes (Death, Hospitalization)
  Sender: FDA-Public Use
  Company Number: CHNY2013BR002075

PATIENT
  Sex: Male

DRUGS (1)
  1. CIBALENAA [Suspect]
     Indication: HEADACHE
     Dosage: UNK, UNK
     Route: 065

REACTIONS (2)
  - Emphysema [Fatal]
  - Headache [Unknown]
